FAERS Safety Report 14125344 (Version 2)
Quarter: 2017Q4

REPORT INFORMATION
  Report Type: Spontaneous
  Country: JP (occurrence: JP)
  Receive Date: 20171025
  Receipt Date: 20171130
  Transmission Date: 20180321
  Serious: Yes (Other)
  Sender: FDA-Public Use
  Company Number: JP-SA-2017SA204021

PATIENT
  Age: 12 Month
  Sex: Male

DRUGS (1)
  1. LEVOCETIRIZINE [Suspect]
     Active Substance: LEVOCETIRIZINE
     Indication: OTITIS MEDIA
     Route: 048

REACTIONS (2)
  - Febrile convulsion [Unknown]
  - Intentional product misuse [Unknown]
